FAERS Safety Report 19620336 (Version 1)
Quarter: 2021Q3

REPORT INFORMATION
  Report Type: Other
  Country: DK (occurrence: DK)
  Receive Date: 20210728
  Receipt Date: 20210728
  Transmission Date: 20211014
  Serious: Yes (Death, Other)
  Sender: FDA-Public Use
  Company Number: DK-ROCHE-2874553

PATIENT

DRUGS (1)
  1. TOCILIZUMAB. [Suspect]
     Active Substance: TOCILIZUMAB
     Indication: CARDIAC ARREST
     Dosage: 1?HOUR INFUSION OF 8 MG OF TOCILIZUMAB PER KG BODY WEIGHT (MAXIMUM DOSE 800 MG, IE, 40 ML OF CONCENT
     Route: 042

REACTIONS (5)
  - Arrhythmia [Unknown]
  - Haemorrhage [Unknown]
  - Infection [Unknown]
  - Pneumonia [Unknown]
  - Death [Fatal]
